FAERS Safety Report 6819142-6 (Version None)
Quarter: 2010Q3

REPORT INFORMATION
  Report Type: 
  Country: None (occurrence: None)
  Receive Date: 20100707
  Receipt Date: 20100115
  Transmission Date: 20110219
  Serious: Yes (Hospitalization, Other)
  Sender: FDA-Public Use
  Company Number: US-ASTRAZENECA-2009SE21074

PATIENT
  Age: 493 Month
  Sex: Female
  Weight: 102.1 kg

DRUGS (5)
  1. SEROQUEL [Suspect]
     Indication: DEPRESSION
     Route: 048
     Dates: start: 20031030
  2. SEROQUEL [Suspect]
     Indication: MOOD SWINGS
     Route: 048
     Dates: start: 20031030
  3. SEROQUEL [Suspect]
     Route: 048
     Dates: start: 20031101, end: 20040101
  4. SEROQUEL [Suspect]
     Route: 048
     Dates: start: 20031101, end: 20040101
  5. ZOLOFT [Concomitant]
     Dates: start: 20030101

REACTIONS (4)
  - ACUTE CORONARY SYNDROME [None]
  - CORONARY ARTERY DISEASE [None]
  - HYPERTENSION [None]
  - TYPE 2 DIABETES MELLITUS [None]
